FAERS Safety Report 4325470-9 (Version None)
Quarter: 2004Q1

REPORT INFORMATION
  Report Type: 
  Country: None (occurrence: None)
  Receive Date: 20040324
  Receipt Date: 20040310
  Transmission Date: 20041129
  Serious: Yes (Other)
  Sender: FDA-Public Use
  Company Number: US-JNJFOC-20040302388

PATIENT
  Age: 49 Year
  Sex: Female

DRUGS (1)
  1. LEUSTATIN [Suspect]
     Indication: HAIRY CELL LEUKAEMIA
     Dosage: 12 YEARS AGO

REACTIONS (4)
  - HAIRY CELL LEUKAEMIA [None]
  - HERPES ZOSTER [None]
  - LEUKAEMIA RECURRENT [None]
  - SYSTEMIC LUPUS ERYTHEMATOSUS [None]
